FAERS Safety Report 24302138 (Version 1)
Quarter: 2024Q3

REPORT INFORMATION
  Report Type: Spontaneous
  Country: US (occurrence: None)
  Receive Date: 20240909
  Receipt Date: 20240909
  Transmission Date: 20241017
  Serious: Yes (Hospitalization)
  Sender: Public
  Company Number: None

PATIENT
  Sex: Male

DRUGS (2)
  1. CRESEMBA [Suspect]
     Active Substance: ISAVUCONAZONIUM SULFATE
     Indication: Acute leukaemia
     Dosage: 372MG ONCE DAILY PO
     Route: 048
     Dates: start: 202404
  2. XOSPATA [Concomitant]
     Active Substance: GILTERITINIB

REACTIONS (2)
  - Diverticulitis [None]
  - Full blood count abnormal [None]

NARRATIVE: CASE EVENT DATE: 20240801
